FAERS Safety Report 6255594-0 (Version None)
Quarter: 2009Q2

REPORT INFORMATION
  Report Type: 
  Country: None (occurrence: None)
  Receive Date: 20090630
  Receipt Date: 20090618
  Transmission Date: 20091009
  Serious: Yes (Other)
  Sender: FDA-Public Use
  Company Number: ADE2009-0675

PATIENT
  Age: 66 Year
  Sex: Male
  Weight: 71 kg

DRUGS (1)
  1. ATENOLOL [Suspect]
     Indication: HYPERTENSION
     Dosage: 25MG - DAILY - ORAL
     Route: 048

REACTIONS (3)
  - FEELING ABNORMAL [None]
  - MIDDLE INSOMNIA [None]
  - PALPITATIONS [None]
